FAERS Safety Report 6988502-5 (Version None)
Quarter: 2010Q3

REPORT INFORMATION
  Report Type: 
  Country: None (occurrence: None)
  Receive Date: 20100916
  Receipt Date: 20100901
  Transmission Date: 20110219
  Serious: Yes (Hospitalization)
  Sender: FDA-Public Use
  Company Number: TH-GENENTECH-306330

PATIENT
  Sex: Female

DRUGS (4)
  1. MABTHERA [Suspect]
     Indication: CHRONIC LYMPHOCYTIC LEUKAEMIA
     Dosage: 600 MG, UNK
     Route: 042
     Dates: start: 20100518
  2. MABTHERA [Suspect]
     Dosage: 800 MG, UNK
     Route: 042
     Dates: start: 20100601
  3. FLUDARABINE [Concomitant]
     Indication: NON-HODGKIN'S LYMPHOMA
     Dosage: 15 MG/M2, UNK
  4. CYCLOPHOSPHAMIDE [Concomitant]
     Indication: NON-HODGKIN'S LYMPHOMA
     Dosage: 150 MG/M2, UNK

REACTIONS (1)
  - HAEMOLYTIC URAEMIC SYNDROME [None]
